FAERS Safety Report 21237218 (Version 1)
Quarter: 2022Q3

REPORT INFORMATION
  Report Type: Spontaneous
  Country: US (occurrence: None)
  Receive Date: 20220822
  Receipt Date: 20220822
  Transmission Date: 20221027
  Serious: No
  Sender: FDA-Public Use
  Company Number: 2022A286852

PATIENT
  Sex: Female
  Weight: 75.8 kg

DRUGS (1)
  1. FARXIGA [Suspect]
     Active Substance: DAPAGLIFLOZIN PROPANEDIOL
     Indication: Diabetes mellitus
     Route: 048
     Dates: start: 2022

REACTIONS (2)
  - Diabetes mellitus inadequate control [Not Recovered/Not Resolved]
  - Weight decreased [Unknown]
